FAERS Safety Report 7377344-7 (Version None)
Quarter: 2011Q1

REPORT INFORMATION
  Report Type: 
  Country: None (occurrence: None)
  Receive Date: 20110328
  Receipt Date: 20110323
  Transmission Date: 20110831
  Serious: Yes (Death)
  Sender: FDA-Public Use
  Company Number: GB-ASTELLAS-2011US001199

PATIENT
  Sex: Male

DRUGS (3)
  1. VFEND [Concomitant]
     Indication: ASPERGILLOSIS
     Dosage: UNK
     Route: 065
  2. AMBISOME [Suspect]
     Indication: ASPERGILLOSIS
     Dosage: UNK
     Route: 042
  3. HEPARIN [Concomitant]
     Indication: PRODUCT USED FOR UNKNOWN INDICATION
     Dosage: UNK
     Route: 065
     Dates: start: 20110318

REACTIONS (1)
  - HAEMORRHAGE [None]
